FAERS Safety Report 8443223-7 (Version None)
Quarter: 2012Q2

REPORT INFORMATION
  Report Type: 
  Country: None (occurrence: None)
  Receive Date: 20120617
  Receipt Date: 20120605
  Transmission Date: 20120825
  Serious: Yes (Hospitalization)
  Sender: FDA-Public Use
  Company Number: IT-TEVA-342895ISR

PATIENT
  Sex: Male

DRUGS (8)
  1. ASPIRIN [Concomitant]
     Indication: CARDIAC ASSISTANCE DEVICE USER
  2. LASIX [Concomitant]
     Indication: HYPERTENSION
     Route: 048
  3. BACTRIM [Concomitant]
     Indication: STAPHYLOCOCCAL INFECTION
     Dosage: DOSE: 160MG TRIMETHOPRIM + 800 MG SULFAMETHOXAZOLE
     Route: 048
  4. CARVEDILOL [Concomitant]
     Dosage: 18.75 MILLIGRAM;
     Route: 048
  5. ZYLORIC 300MG [Concomitant]
     Dosage: 150 MILLIGRAM;
     Route: 048
  6. RAMIPRIL [Suspect]
     Indication: HYPERTENSION
     Dosage: 2.5 MILLIGRAM;
     Route: 048
     Dates: start: 20110101, end: 20120529
  7. SIMVASTATIN [Concomitant]
  8. ALDACTONE [Suspect]
     Indication: HYPERTENSION
     Dosage: 25 MILLIGRAM;
     Route: 048
     Dates: start: 20110101, end: 20120529

REACTIONS (2)
  - QUADRIPARESIS [None]
  - HYPERKALAEMIA [None]
